FAERS Safety Report 4300619-2 (Version None)
Quarter: 2004Q1

REPORT INFORMATION
  Report Type: 
  Country: None (occurrence: None)
  Receive Date: 20040218
  Receipt Date: 20040204
  Transmission Date: 20041129
  Serious: Yes (Hospitalization)
  Sender: FDA-Public Use
  Company Number: 200400824

PATIENT
  Age: 46 Year
  Sex: Female
  Weight: 48.0813 kg

DRUGS (4)
  1. BOTOX [Suspect]
     Indication: MIGRAINE
     Dosage: 60 UNITS ONCE IM
     Route: 030
     Dates: start: 20030417
  2. TOPAMAX [Concomitant]
  3. ATACAND [Concomitant]
  4. ULTRACET [Concomitant]

REACTIONS (1)
  - MIGRAINE [None]
